FAERS Safety Report 4763476-6 (Version None)
Quarter: 2005Q3

REPORT INFORMATION
  Report Type: 
  Country: None (occurrence: None)
  Receive Date: 20050908
  Receipt Date: 20050826
  Transmission Date: 20060218
  Serious: Yes (Hospitalization)
  Sender: FDA-Public Use
  Company Number: PHRM2005FR02331

PATIENT
  Age: 81 Year
  Sex: Female

DRUGS (12)
  1. CATAPRES [Suspect]
     Dosage: 1 DF, QD
     Route: 048
     Dates: end: 20050802
  2. HYPERIUM [Suspect]
     Route: 048
  3. TAHOR [Suspect]
     Dosage: 1 DF, QD
     Route: 048
  4. LOXEN LP [Suspect]
     Dosage: 50 MG, BID
     Route: 048
  5. TEGRETOL [Suspect]
     Dosage: 400 MG, QD
     Route: 048
  6. NITRODERM [Suspect]
     Route: 062
  7. PLAVIX [Suspect]
     Route: 048
  8. IMOVANE [Suspect]
     Route: 048
  9. HUMALOG [Suspect]
     Route: 065
  10. UMULINE [Concomitant]
     Route: 065
  11. LANTUS [Concomitant]
     Route: 065
  12. COTAREG [Suspect]
     Dosage: 1 DF, QD
     Route: 048

REACTIONS (1)
  - TOXIC SKIN ERUPTION [None]
